FAERS Safety Report 14713647 (Version 2)
Quarter: 2018Q2

REPORT INFORMATION
  Report Type: Spontaneous
  Country: US (occurrence: US)
  Receive Date: 20180404
  Receipt Date: 20180406
  Transmission Date: 20180711
  Serious: Yes (Other)
  Sender: FDA-Public Use
  Company Number: US-CIPLA (EU) LIMITED-2017US20539

PATIENT

DRUGS (1)
  1. SERTRALINE [Suspect]
     Active Substance: SERTRALINE HYDROCHLORIDE
     Dosage: 25 MG, QD
     Route: 048
     Dates: start: 20171109, end: 20171109

REACTIONS (3)
  - Drug administration error [Unknown]
  - Drug prescribing error [Unknown]
  - Anxiety [Unknown]

NARRATIVE: CASE EVENT DATE: 20171109
